FAERS Safety Report 20937666 (Version 1)
Quarter: 2022Q2

REPORT INFORMATION
  Report Type: Spontaneous
  Country: US (occurrence: None)
  Receive Date: 20220608
  Receipt Date: 20220608
  Transmission Date: 20220721
  Serious: No
  Sender: FDA-Public Use
  Company Number: None

PATIENT
  Age: 86 Year
  Sex: Male
  Weight: 68.04 kg

DRUGS (1)
  1. ODOMZO [Suspect]
     Active Substance: SONIDEGIB
     Indication: Basal cell carcinoma
     Dosage: TAKE 1 CAPSULE  DAILY  BY MOUTH  AN EMPTY STOMACH, AT LEAST 1 HOUR BEBORE OR 2 HOURS
     Route: 048
     Dates: start: 202203

REACTIONS (2)
  - Asthenia [None]
  - Pleural effusion [None]
